FAERS Safety Report 24135639 (Version 2)
Quarter: 2024Q3

REPORT INFORMATION
  Report Type: Report from Study
  Country: US (occurrence: US)
  Receive Date: 20240725
  Receipt Date: 20240802
  Transmission Date: 20241016
  Serious: Yes (Other)
  Sender: ROCHE
  Company Number: US-ROCHE-10000028519

PATIENT
  Age: 42 Year
  Sex: Female

DRUGS (5)
  1. XOLAIR [Suspect]
     Active Substance: OMALIZUMAB
     Indication: Urticaria
     Route: 058
  2. XOLAIR [Suspect]
     Active Substance: OMALIZUMAB
  3. PREDNISONE [Concomitant]
     Active Substance: PREDNISONE
     Indication: Anaphylactic shock
  4. PREDNISONE [Concomitant]
     Active Substance: PREDNISONE
     Indication: Pharyngeal swelling
  5. PREDNISONE [Concomitant]
     Active Substance: PREDNISONE
     Indication: Urticaria

REACTIONS (4)
  - Anaphylactic shock [Recovered/Resolved]
  - Pharyngeal swelling [Recovered/Resolved]
  - Urticaria [Recovered/Resolved]
  - Respiratory disorder [Recovered/Resolved]
